FAERS Safety Report 15238470 (Version 2)
Quarter: 2019Q2

REPORT INFORMATION
  Report Type: Spontaneous
  Country: FR (occurrence: FR)
  Receive Date: 20180803
  Receipt Date: 20190609
  Transmission Date: 20190711
  Serious: Yes (Hospitalization, Other)
  Sender: FDA-Public Use
  Company Number: PHHY2018FR062407

PATIENT
  Sex: Female

DRUGS (3)
  1. PRAVASTATIN SODIUM. [Suspect]
     Active Substance: PRAVASTATIN SODIUM
     Indication: PROPHYLAXIS
     Dosage: 20 MG, UNK
     Route: 065
  2. SIMVASTATIN+EZETIMIBE [Suspect]
     Active Substance: EZETIMIBE\SIMVASTATIN
     Indication: CARDIOVASCULAR EVENT PROPHYLAXIS
     Route: 048
  3. SIMVASTATIN. [Suspect]
     Active Substance: SIMVASTATIN
     Indication: CARDIOVASCULAR EVENT PROPHYLAXIS
     Dosage: 20 MG, UNK
     Route: 048

REACTIONS (1)
  - Rhabdomyolysis [Unknown]
